FAERS Safety Report 4887969-6 (Version None)
Quarter: 2006Q1

REPORT INFORMATION
  Report Type: 
  Country: None (occurrence: None)
  Receive Date: 20060123
  Receipt Date: 20050414
  Transmission Date: 20060701
  Serious: Yes (Other)
  Sender: FDA-Public Use
  Company Number: US-MERCK-0504USA02952

PATIENT
  Age: 70 Year
  Sex: Female
  Weight: 114 kg

DRUGS (2)
  1. VIOXX [Suspect]
     Indication: ARTHRITIS
     Route: 048
     Dates: start: 19990101, end: 20040101
  2. ASPIRIN [Concomitant]
     Route: 065
     Dates: start: 20030101, end: 20040101

REACTIONS (2)
  - CEREBROVASCULAR ACCIDENT [None]
  - HAEMATOCHEZIA [None]
